FAERS Safety Report 10951828 (Version 11)
Quarter: 2017Q3

REPORT INFORMATION
  Report Type: Spontaneous
  Country: CA (occurrence: CA)
  Receive Date: 20150325
  Receipt Date: 20170726
  Transmission Date: 20171127
  Serious: Yes (Hospitalization, Other)
  Sender: FDA-Public Use
  Company Number: CA-ROCHE-1485955

PATIENT
  Age: 13 Year
  Sex: Female

DRUGS (22)
  1. XOLAIR [Suspect]
     Active Substance: OMALIZUMAB
     Indication: ASTHMA
     Dosage: 150 MG, EVERY 4 WEEKS
     Route: 058
     Dates: start: 20140224
  2. XOLAIR [Suspect]
     Active Substance: OMALIZUMAB
     Route: 058
     Dates: start: 20170622
  3. LOSEC [Concomitant]
     Active Substance: OMEPRAZOLE
     Indication: PRODUCT USED FOR UNKNOWN INDICATION
     Route: 065
  4. XOLAIR [Suspect]
     Active Substance: OMALIZUMAB
     Route: 058
     Dates: start: 20160617
  5. ADVAIR HFA [Concomitant]
     Active Substance: FLUTICASONE PROPIONATE\SALMETEROL XINAFOATE
     Indication: PRODUCT USED FOR UNKNOWN INDICATION
     Route: 065
  6. VENTOLIN [Concomitant]
     Active Substance: ALBUTEROL SULFATE
     Indication: PRODUCT USED FOR UNKNOWN INDICATION
     Dosage: FOR 3 DAYS
     Route: 065
  7. XOLAIR [Suspect]
     Active Substance: OMALIZUMAB
     Route: 058
     Dates: start: 20170720
  8. SPIRIVA [Concomitant]
     Active Substance: TIOTROPIUM BROMIDE MONOHYDRATE
     Indication: PRODUCT USED FOR UNKNOWN INDICATION
     Route: 065
  9. XOLAIR [Suspect]
     Active Substance: OMALIZUMAB
     Route: 058
     Dates: start: 20170523
  10. XOLAIR [Suspect]
     Active Substance: OMALIZUMAB
     Dosage: UNK
     Route: 058
     Dates: start: 20150316
  11. XOLAIR [Suspect]
     Active Substance: OMALIZUMAB
     Dosage: UNK
     Route: 058
     Dates: start: 20150903
  12. SINGULAIR [Concomitant]
     Active Substance: MONTELUKAST SODIUM
     Indication: PRODUCT USED FOR UNKNOWN INDICATION
     Route: 065
  13. ALVESCO [Concomitant]
     Active Substance: CICLESONIDE
     Indication: ASTHMA
     Dosage: 200 MG, UNK
     Route: 065
  14. NASONEX [Concomitant]
     Active Substance: MOMETASONE FUROATE
     Indication: PRODUCT USED FOR UNKNOWN INDICATION
     Route: 065
  15. OMEPRAZOLE. [Concomitant]
     Active Substance: OMEPRAZOLE
     Indication: PRODUCT USED FOR UNKNOWN INDICATION
     Route: 065
  16. VENTOLIN [Concomitant]
     Active Substance: ALBUTEROL SULFATE
     Dosage: SHE TAPERED DOSE FOR ABOUT 2 WEEKS.
     Route: 065
  17. XOLAIR [Suspect]
     Active Substance: OMALIZUMAB
     Dosage: UNK
     Route: 058
     Dates: start: 20140805
  18. XOLAIR [Suspect]
     Active Substance: OMALIZUMAB
     Dosage: UNK
     Route: 058
     Dates: start: 20160519
  19. VENTOLIN [Concomitant]
     Active Substance: ALBUTEROL SULFATE
     Dosage: FOR 3 DAYS
     Route: 065
  20. XOLAIR [Suspect]
     Active Substance: OMALIZUMAB
     Dosage: UNK
     Route: 058
     Dates: start: 20150514
  21. XOLAIR [Suspect]
     Active Substance: OMALIZUMAB
     Route: 058
     Dates: start: 20170425
  22. ALVESCO [Concomitant]
     Active Substance: CICLESONIDE
     Dosage: 800 UG, QD
     Route: 065
     Dates: start: 20160610

REACTIONS (17)
  - Injection site pruritus [Unknown]
  - Heart rate decreased [Unknown]
  - Swollen tongue [Unknown]
  - Asthma [Recovering/Resolving]
  - Injection site reaction [Unknown]
  - Injection site erythema [Recovering/Resolving]
  - Injection site warmth [Unknown]
  - Nasopharyngitis [Unknown]
  - Injection site swelling [Recovered/Resolved]
  - Pruritus [Unknown]
  - Lower respiratory tract infection [Unknown]
  - Contusion [Recovering/Resolving]
  - Influenza [Unknown]
  - Injection site urticaria [Recovered/Resolved]
  - Blood pressure decreased [Unknown]
  - Dyspnoea [Recovering/Resolving]
  - Heart rate increased [Unknown]

NARRATIVE: CASE EVENT DATE: 20140224
